FAERS Safety Report 5407145-8 (Version None)
Quarter: 2007Q3

REPORT INFORMATION
  Report Type: 
  Country: None (occurrence: None)
  Receive Date: 20070807
  Receipt Date: 20070806
  Transmission Date: 20080115
  Serious: Yes (Other)
  Sender: FDA-Public Use
  Company Number: A0668004A

PATIENT
  Age: 73 Year
  Sex: Female

DRUGS (1)
  1. CITRUCEL REGULAR SUSPENSION [Suspect]
     Indication: DRUG USE FOR UNKNOWN INDICATION
     Route: 048

REACTIONS (6)
  - LOCAL SWELLING [None]
  - PHARYNGEAL HAEMORRHAGE [None]
  - PHARYNGEAL INFLAMMATION [None]
  - SENSATION OF FOREIGN BODY [None]
  - THROAT IRRITATION [None]
  - WEIGHT INCREASED [None]
